FAERS Safety Report 18683182 (Version 1)
Quarter: 2020Q4

REPORT INFORMATION
  Report Type: Spontaneous
  Country: LV (occurrence: LV)
  Receive Date: 20201230
  Receipt Date: 20201230
  Transmission Date: 20210114
  Serious: Yes (Hospitalization)
  Sender: FDA-Public Use
  Company Number: LV-MYLANLABS-2020M1105172

PATIENT
  Age: 51 Year
  Sex: Female

DRUGS (24)
  1. CYCLOPHOSPHAMIDE. [Suspect]
     Active Substance: CYCLOPHOSPHAMIDE
     Dosage: 750 MILLIGRAM/SQ. METER ON DAY 2 (R-CHOP REGIMEN)
     Route: 065
  2. BENDAMUSTINE [Suspect]
     Active Substance: BENDAMUSTINE
     Indication: NON-HODGKIN^S LYMPHOMA STAGE III
     Dosage: 90 MILLIGRAM/SQ. METER ON DAYS 1 AND 2 (R-B REGIMEN)
     Route: 065
     Dates: start: 201809
  3. DEXAMETHASONE. [Suspect]
     Active Substance: DEXAMETHASONE
     Indication: LYMPHADENOPATHY
     Dosage: 40 MILLIGRAM ON DAY 1-4 (R-DHAP REGIMEN)
     Route: 065
     Dates: start: 2017
  4. MELPHALAN. [Suspect]
     Active Substance: MELPHALAN
     Indication: BONE MARROW CONDITIONING REGIMEN
     Dosage: 140 MILLIGRAM/SQ. METER ON DAY -1 (R-BEAM REGIMEN)
     Route: 065
     Dates: start: 201712
  5. DOXORUBICIN [Suspect]
     Active Substance: DOXORUBICIN
     Indication: NON-HODGKIN^S LYMPHOMA STAGE III
     Dosage: 50 MILLIGRAM/SQ. METER ON DAY 2 (R-CHOP REGIMEN)
     Route: 065
  6. VINCRISTINE [Suspect]
     Active Substance: VINCRISTINE
     Dosage: 1.4 MILLIGRAM/SQ. METER ON DAY 2 (R-CHOP REGIMEN)
     Route: 065
  7. ETOPOSIDE. [Suspect]
     Active Substance: ETOPOSIDE
     Indication: BONE MARROW CONDITIONING REGIMEN
     Dosage: 200 MILLIGRAM/SQ. METER ON DAY -5 TO -2 (R-BEAM REGIMEN)
     Route: 065
     Dates: start: 201712
  8. CISPLATIN. [Suspect]
     Active Substance: CISPLATIN
     Indication: ABDOMINAL LYMPHADENOPATHY
  9. CARMUSTINE. [Suspect]
     Active Substance: CARMUSTINE
     Indication: BONE MARROW CONDITIONING REGIMEN
     Dosage: 300 MILLIGRAM/SQ. METER ON DAY -6 (R-BEAM REGIMEN)
     Route: 065
     Dates: start: 201712
  10. RITUXIMAB. [Suspect]
     Active Substance: RITUXIMAB
     Indication: NON-HODGKIN^S LYMPHOMA STAGE III
     Dosage: 375 MILLIGRAM/SQ. METER ON DAY 1 (R-B REGIMEN; RECEIVED 6 COURSES)
     Route: 042
     Dates: start: 201809
  11. CYCLOPHOSPHAMIDE. [Suspect]
     Active Substance: CYCLOPHOSPHAMIDE
     Indication: NON-HODGKIN^S LYMPHOMA STAGE III
     Dosage: 1000 MILLIGRAM/SQ. METER ON DAY 2 (R-CVP REGIMEN)
     Route: 065
     Dates: start: 201512
  12. PREDNISONE. [Suspect]
     Active Substance: PREDNISONE
     Indication: NON-HODGKIN^S LYMPHOMA STAGE III
     Dosage: 100 MILLIGRAM ON DAY 2-6 (R-CHOP REGIMEN)
     Route: 065
  13. CYTARABINE. [Suspect]
     Active Substance: CYTARABINE
     Indication: LYMPHADENOPATHY
     Dosage: 2000 MILLIGRAM/SQ. METER ON DAY 3 (R-DHAP REGIMEN)
     Route: 065
     Dates: start: 2017
  14. BENDAMUSTINE [Suspect]
     Active Substance: BENDAMUSTINE
     Dosage: 150 MILLIGRAM
     Route: 065
     Dates: start: 201809
  15. RITUXIMAB. [Suspect]
     Active Substance: RITUXIMAB
     Indication: BONE MARROW CONDITIONING REGIMEN
     Dosage: 375 MILLIGRAM/SQ. METER ON DAY -7 (R-BEAM REGIMEN)
     Route: 065
     Dates: start: 201712
  16. CYTARABINE. [Suspect]
     Active Substance: CYTARABINE
     Indication: ABDOMINAL LYMPHADENOPATHY
     Dosage: 200 MILLIGRAM/SQ. METER ON DAYS -5 TO -2 (R-BEAM REGIMEN)
     Route: 065
     Dates: start: 201712
  17. RITUXIMAB. [Suspect]
     Active Substance: RITUXIMAB
     Indication: NON-HODGKIN^S LYMPHOMA STAGE III
     Dosage: 375 MILLIGRAM/SQ. METER ON DAY 1 (R-CVP REGIMEN)
     Route: 065
     Dates: start: 201512
  18. VINCRISTINE [Suspect]
     Active Substance: VINCRISTINE
     Indication: NON-HODGKIN^S LYMPHOMA STAGE III
     Dosage: 2 MILLIGRAM ON DAY 2 (R-CVP REGIMEN)
     Route: 065
     Dates: start: 201512
  19. CYTARABINE. [Suspect]
     Active Substance: CYTARABINE
     Indication: BONE MARROW CONDITIONING REGIMEN
  20. CISPLATIN. [Suspect]
     Active Substance: CISPLATIN
     Indication: LYMPHADENOPATHY
     Dosage: 100 MILLIGRAM/SQ. METER ON DAY 1 (R-DHAP REGIMEN)
     Route: 065
     Dates: start: 2017
  21. RITUXIMAB. [Suspect]
     Active Substance: RITUXIMAB
     Indication: LYMPHADENOPATHY
     Dosage: 375 MILLIGRAM/SQ. METER ON DAY 1 (R-CHOP REGIMEN)
     Route: 065
  22. RITUXIMAB. [Suspect]
     Active Substance: RITUXIMAB
     Indication: ABDOMINAL LYMPHADENOPATHY
     Dosage: 375 MILLIGRAM/SQ. METER ON DAY 1 (R-DHAP REGIMEN)
     Route: 065
     Dates: start: 2017
  23. DEXAMETHASONE. [Suspect]
     Active Substance: DEXAMETHASONE
     Indication: ABDOMINAL LYMPHADENOPATHY
  24. FILGRASTIM [Concomitant]
     Active Substance: FILGRASTIM
     Indication: PRODUCT USED FOR UNKNOWN INDICATION
     Dosage: 10 MICROGRAM/KILOGRAM, QD RECEIVED 6 COURSES
     Route: 065
     Dates: start: 2017

REACTIONS (5)
  - Human herpesvirus 6 infection [Unknown]
  - JC virus infection [Not Recovered/Not Resolved]
  - Human herpesvirus 7 infection [Unknown]
  - Herpes zoster [Unknown]
  - Progressive multifocal leukoencephalopathy [Not Recovered/Not Resolved]
